FAERS Safety Report 5786317-7 (Version None)
Quarter: 2008Q2

REPORT INFORMATION
  Report Type: 
  Country: None (occurrence: None)
  Receive Date: 20080624
  Receipt Date: 20080612
  Transmission Date: 20081010
  Serious: Yes (Other)
  Sender: FDA-Public Use
  Company Number: AR-PFIZER INC-2008048585

PATIENT
  Sex: Female
  Weight: 51 kg

DRUGS (5)
  1. CHANTIX [Suspect]
     Indication: SMOKING CESSATION THERAPY
     Route: 048
     Dates: start: 20080401, end: 20080501
  2. ZOLPIDEM [Suspect]
  3. ASPIRIN [Concomitant]
     Route: 048
  4. ALL OTHER THERAPEUTIC PRODUCTS [Concomitant]
     Route: 048
  5. NICOTINELL [Concomitant]
     Route: 062

REACTIONS (6)
  - AGEUSIA [None]
  - AMNESIA [None]
  - MACROCYTOSIS [None]
  - SPONTANEOUS HAEMATOMA [None]
  - TRAUMATIC BRAIN INJURY [None]
  - WEIGHT DECREASED [None]
